FAERS Safety Report 6335747-3 (Version None)
Quarter: 2009Q3

REPORT INFORMATION
  Report Type: 
  Country: None (occurrence: None)
  Receive Date: 20090828
  Receipt Date: 20090729
  Transmission Date: 20100115
  Serious: No
  Sender: FDA-Public Use
  Company Number: 8037668

PATIENT
  Age: 14 Year
  Sex: Male
  Weight: 85.9 kg

DRUGS (11)
  1. CIMZIA [Suspect]
     Indication: CROHN'S DISEASE
     Dosage: 400 MG 1/2W SC
     Route: 058
     Dates: start: 20080930, end: 20090201
  2. PREDNISONE TAB [Suspect]
     Dosage: 40 MG /D
  3. FLAGYL [Concomitant]
  4. AVELOX [Concomitant]
  5. FISH OIL [Concomitant]
  6. MULTI-VITAMINS [Concomitant]
  7. PRILOSEC [Concomitant]
  8. VITAMIN D [Concomitant]
  9. TUMS EXTRA STRENGTH [Concomitant]
  10. FLUCONAZOLE [Concomitant]
  11. NYSTATIN [Concomitant]

REACTIONS (5)
  - CANDIDIASIS [None]
  - DRUG HYPERSENSITIVITY [None]
  - INJECTION SITE REACTION [None]
  - SENSATION OF FOREIGN BODY [None]
  - SWOLLEN TONGUE [None]
